FAERS Safety Report 17061617 (Version 9)
Quarter: 2021Q3

REPORT INFORMATION
  Report Type: Report from Study
  Country: JP (occurrence: JP)
  Receive Date: 20191121
  Receipt Date: 20210910
  Transmission Date: 20211014
  Serious: Yes (Hospitalization, Other)
  Sender: FDA-Public Use
  Company Number: JP-ALNYLAM PHARMACEUTICALS, INC.-ALN-2019-000878

PATIENT

DRUGS (51)
  1. SOSEGON [Concomitant]
     Active Substance: PENTAZOCINE
     Indication: CARDIAC PACEMAKER INSERTION
     Dosage: 15 MILLIGRAM
     Route: 065
     Dates: start: 20200407, end: 20200407
  2. XYLOCAINE [Concomitant]
     Active Substance: LIDOCAINE HYDROCHLORIDE
     Indication: CARDIAC PACEMAKER INSERTION
     Dosage: UNK
     Route: 065
     Dates: start: 20200407, end: 20200407
  3. IRRIBOW [Concomitant]
     Active Substance: RAMOSETRON HYDROCHLORIDE
     Indication: DIARRHOEA
  4. LAC?B GRANULAR POWDER N [Concomitant]
     Indication: ENTEROCOLITIS
     Dosage: 4 MILLIGRAM
     Route: 048
  5. ASPARA POTASSIUM [Concomitant]
     Active Substance: POTASSIUM ASPARTATE
     Indication: HYPOKALAEMIA
     Dosage: 300 MILLIGRAM, TID
     Route: 048
     Dates: start: 20200324, end: 20200428
  6. NORADRENALINE+SOLACET F+SODIUM CHLORIDE SOLUTION.ISOTONIC [Concomitant]
     Indication: ANAESTHESIA PROCEDURE
  7. ONPATTRO [Suspect]
     Active Substance: PATISIRAN SODIUM
     Dosage: 10.5 MILLIGRAM
     Route: 041
     Dates: start: 20200311, end: 20200513
  8. CEFAZOLIN NA [Concomitant]
     Active Substance: CEFAZOLIN SODIUM
     Indication: CARDIAC PACEMAKER INSERTION
     Dosage: 2 GRAM
     Route: 065
     Dates: start: 20200407, end: 20200407
  9. RISUMIC [Concomitant]
     Active Substance: AMEZINIUM METILSULFATE
     Indication: HYPOTENSION
     Dosage: 20 MILLIGRAM
     Route: 048
     Dates: end: 20200406
  10. SUMILU STICK [Concomitant]
     Active Substance: FELBINAC
     Indication: NEUROPATHY PERIPHERAL
     Dosage: APPROPRIATE AMOUNT, 2?3 TIMES/DAY
     Dates: start: 20200916
  11. CALONAL [Concomitant]
     Active Substance: ACETAMINOPHEN
     Indication: PROPHYLAXIS
     Dosage: 400 MILLIGRAM, SINGLE
     Route: 048
     Dates: start: 20191106, end: 20191127
  12. NORADRENALINE+SOLACET F+SODIUM CHLORIDE SOLUTION.ISOTONIC [Concomitant]
     Indication: AUTONOMIC NEUROPATHY
  13. ONPATTRO [Suspect]
     Active Substance: PATISIRAN SODIUM
     Dosage: 11.7 MILLIGRAM
     Route: 041
     Dates: start: 20200826, end: 20201028
  14. SOLACET F [Concomitant]
     Active Substance: CALCIUM CHLORIDE\POTASSIUM CHLORIDE\SODIUM ACETATE\SODIUM CHLORIDE
     Indication: CARDIAC PACEMAKER INSERTION
     Dosage: UNK
     Route: 065
     Dates: start: 20200407, end: 20200407
  15. LYRICA [Concomitant]
     Active Substance: PREGABALIN
     Dosage: 75 MILLIGRAM, BID
     Route: 048
  16. LOPERAMIDE [Concomitant]
     Active Substance: LOPERAMIDE
     Indication: DIARRHOEA
     Dosage: 1 MILLIGRAM, BID
     Route: 048
     Dates: end: 20200228
  17. MIDODRINE HYDROCHLORIDE. [Concomitant]
     Active Substance: MIDODRINE HYDROCHLORIDE
     Indication: HYPOTENSION
     Dosage: 2 MILLIGRAM, BID
     Route: 065
  18. AMEZINIUM METILSULFATE [Concomitant]
     Active Substance: AMEZINIUM METILSULFATE
     Indication: HYPOTENSION
     Dosage: 10 MILLIGRAM, BID
     Route: 048
     Dates: start: 20200407
  19. AZOSEMIDE [Concomitant]
     Active Substance: AZOSEMIDE
     Dosage: 30 MILLIGRAM, PRN
     Route: 048
     Dates: start: 20200219, end: 20200713
  20. AMBROXOL HYDROCHLORIDE [Concomitant]
     Active Substance: AMBROXOL HYDROCHLORIDE
     Indication: CARDIAC ABLATION
     Dosage: 45 MILLIGRAM, QD
     Route: 048
     Dates: start: 20201001
  21. ONPATTRO [Suspect]
     Active Substance: PATISIRAN SODIUM
     Indication: HEREDITARY NEUROPATHIC AMYLOIDOSIS
     Dosage: 11.1 MILLIGRAM
     Route: 041
     Dates: start: 20191106, end: 20200129
  22. POLARAMINE [Concomitant]
     Active Substance: DEXCHLORPHENIRAMINE MALEATE
     Indication: PROPHYLAXIS
     Dosage: 5 MILLIGRAM, SINGLE
     Route: 042
     Dates: start: 20191106
  23. FAMOTIDINE. [Concomitant]
     Active Substance: FAMOTIDINE
     Indication: PROPHYLAXIS
     Dosage: 20 MILLIGRAM, QD
     Route: 042
     Dates: start: 20200219
  24. IRRIBOW [Concomitant]
     Active Substance: RAMOSETRON HYDROCHLORIDE
     Indication: CONSTIPATION
     Dosage: 5 MICROGRAM, BID
     Route: 048
     Dates: end: 20200228
  25. FEXOFENADINE HYDROCHLORIDE. [Concomitant]
     Active Substance: FEXOFENADINE HYDROCHLORIDE
     Indication: RHINITIS ALLERGIC
     Dosage: 60 MILLIGRAM, QD
     Route: 048
  26. FURSULTIAMINE [Concomitant]
     Active Substance: FURSULTIAMINE
     Indication: VITAMIN B1 DEFICIENCY
     Dosage: 50 MILLIGRAM, BID
     Route: 065
     Dates: start: 20200213
  27. LAC?B GRANULAR POWDER N [Concomitant]
     Dosage: 1 GRAM, BID
     Dates: end: 20191202
  28. AZOSEMIDE [Concomitant]
     Active Substance: AZOSEMIDE
     Indication: CARDIAC FAILURE
     Dosage: 15 MILLIGRAM, QD
     Route: 048
     Dates: start: 20191116, end: 20201217
  29. NORADRENALINE+SOLACET F+SODIUM CHLORIDE SOLUTION.ISOTONIC [Concomitant]
     Indication: HEREDITARY NEUROPATHIC AMYLOIDOSIS
     Dosage: 500 MILLILITER
     Route: 065
     Dates: start: 20201002, end: 20201004
  30. DECADRON [Concomitant]
     Active Substance: DEXAMETHASONE
     Indication: PROPHYLAXIS
     Dosage: 10 MILLIGRAM, SINGLE
     Route: 042
     Dates: start: 20191106
  31. CALONAL [Concomitant]
     Active Substance: ACETAMINOPHEN
     Dosage: 500 MILLIGRAM, SINGLE
     Route: 048
     Dates: start: 20191218
  32. PANVITAN [Concomitant]
     Active Substance: VITAMINS
     Indication: PROPHYLAXIS
  33. IOMERON [Concomitant]
     Active Substance: IOMEPROL
     Indication: CARDIAC PACEMAKER INSERTION
     Dosage: UNK
     Route: 065
     Dates: start: 20200407, end: 20200407
  34. HEPARININ [Concomitant]
     Indication: CARDIAC PACEMAKER INSERTION
     Dosage: 10 KUNITS
     Route: 065
     Dates: start: 20200407, end: 20200407
  35. LYRICA [Concomitant]
     Active Substance: PREGABALIN
     Indication: NEUROPATHY PERIPHERAL
     Dosage: 300 MILLIGRAM
     Route: 048
  36. TSUMURA SHAKUYAKUKANZOTO EXTRACT GRANULES FOR ETHICAL USE [Concomitant]
     Active Substance: HERBALS
     Indication: MUSCLE SPASMS
     Dosage: 2.5 GRAM, QD
     Route: 048
  37. LOPERAMIDE [Concomitant]
     Active Substance: LOPERAMIDE
     Indication: DIARRHOEA
     Dosage: 1 MILLIGRAM, BID
     Route: 048
     Dates: start: 20200513
  38. AZOSEMIDE [Concomitant]
     Active Substance: AZOSEMIDE
     Dosage: 30 MILLIGRAM, QD
     Route: 048
     Dates: start: 20200714
  39. AMOXICILLIN HYDRATE [Concomitant]
     Active Substance: AMOXICILLIN
     Indication: TOOTH EXTRACTION
     Dosage: 250 MILLIGRAM, TID
     Route: 048
     Dates: start: 20200713, end: 20200714
  40. CALONAL [Concomitant]
     Active Substance: ACETAMINOPHEN
     Indication: NEUROPATHY PERIPHERAL
     Dosage: 500 MILLIGRAM, PRN
     Route: 048
     Dates: start: 20200916
  41. ONPATTRO [Suspect]
     Active Substance: PATISIRAN SODIUM
     Dosage: 11.1 MILLIGRAM
     Route: 041
     Dates: start: 20200603, end: 20200624
  42. GASTER [Concomitant]
     Active Substance: FAMOTIDINE
     Indication: PROPHYLAXIS
     Dosage: 20 MILLIGRAM, SINGLE
     Route: 042
     Dates: start: 20191106, end: 20200129
  43. PANVITAN [Concomitant]
     Active Substance: VITAMINS
     Indication: VITAMIN SUPPLEMENTATION
     Dosage: 1 GRAM, QD
     Route: 048
     Dates: start: 20191106
  44. FURSULTIAMINE [Concomitant]
     Active Substance: FURSULTIAMINE
     Indication: VITAMIN B1 DEFICIENCY
     Dosage: 25 MILLIGRAM, BID
     Route: 048
     Dates: start: 20191112
  45. HERBAL NOS [Concomitant]
     Active Substance: HERBALS
     Indication: CARDIAC ABLATION
     Dosage: 7.5 GRAM, TID
     Route: 065
     Dates: start: 20201001
  46. NORADRENALINE+SOLACET F+SODIUM CHLORIDE SOLUTION.ISOTONIC [Concomitant]
     Indication: BLOOD PRESSURE DECREASED
  47. ONPATTRO [Suspect]
     Active Substance: PATISIRAN SODIUM
     Dosage: 11.4 MILLIGRAM
     Route: 041
     Dates: start: 20200219, end: 20200219
  48. ONPATTRO [Suspect]
     Active Substance: PATISIRAN SODIUM
     Dosage: 11.4 MILLIGRAM
     Route: 041
     Dates: start: 20200715, end: 20200805
  49. CALONAL [Concomitant]
     Active Substance: ACETAMINOPHEN
     Indication: PROPHYLAXIS
     Dosage: 100 MILLIGRAM, SINGLE
     Route: 048
     Dates: start: 20191106, end: 20191127
  50. ASPARA POTASSIUM [Concomitant]
     Active Substance: POTASSIUM ASPARTATE
     Dosage: 300 MILLIGRAM, QD
     Route: 048
     Dates: start: 20200429
  51. MIYA?BM [Concomitant]
     Active Substance: CLOSTRIDIUM BUTYRICUM SPORES STRAIN M-55
     Indication: DYSBIOSIS
     Dosage: 1 DOSAGE FORM, TID
     Route: 048
     Dates: start: 20201028

REACTIONS (11)
  - Ventricular arrhythmia [Unknown]
  - Atrial fibrillation [Recovered/Resolved]
  - Neurogenic bladder [Recovered/Resolved]
  - Cardiac failure [Recovered/Resolved]
  - Hypokalaemia [Recovered/Resolved]
  - Gastrooesophageal reflux disease [Unknown]
  - Constipation [Unknown]
  - Seizure [Recovered/Resolved]
  - Muscular weakness [Recovered/Resolved]
  - Oedema peripheral [Recovered/Resolved]
  - Pleural effusion [Recovered/Resolved]

NARRATIVE: CASE EVENT DATE: 20191111
